FAERS Safety Report 9764955 (Version 2)
Quarter: 2013Q4

REPORT INFORMATION
  Report Type: Spontaneous
  Country: US (occurrence: US)
  Receive Date: 20131217
  Receipt Date: 20131224
  Transmission Date: 20140711
  Serious: No
  Sender: FDA-Public Use
  Company Number: US-BIOGENIDEC-2013BI113104

PATIENT
  Age: 47 Year
  Sex: Female

DRUGS (3)
  1. TECFIDERA [Suspect]
     Indication: MULTIPLE SCLEROSIS
     Dates: start: 20130701
  2. TECFIDERA [Suspect]
     Indication: MULTIPLE SCLEROSIS
  3. TECFIDERA [Suspect]
     Indication: MULTIPLE SCLEROSIS

REACTIONS (8)
  - General symptom [Unknown]
  - Discomfort [Unknown]
  - Prescribed underdose [Unknown]
  - Dizziness [Recovered/Resolved]
  - Erythema [Unknown]
  - Rash papular [Recovered/Resolved]
  - Feeling hot [Unknown]
  - Flushing [Recovered/Resolved]
